FAERS Safety Report 14509126 (Version 2)
Quarter: 2018Q1

REPORT INFORMATION
  Report Type: Report from Study
  Country: US (occurrence: US)
  Receive Date: 20180209
  Receipt Date: 20180327
  Transmission Date: 20180509
  Serious: Yes (Hospitalization, Other)
  Sender: FDA-Public Use
  Company Number: US-SUN PHARMACEUTICAL INDUSTRIES LTD-2018US-162806

PATIENT
  Age: 48 Year
  Sex: Male

DRUGS (6)
  1. HUMIRA [Suspect]
     Active Substance: ADALIMUMAB
     Indication: CROHN^S DISEASE
     Dosage: 40MG, 1 IN 2 WEEK
     Route: 058
     Dates: start: 2013, end: 2015
  2. HUMIRA [Suspect]
     Active Substance: ADALIMUMAB
     Dosage: LOADING DOSE: 80MG, 1 IN 1 ONCE
     Route: 058
     Dates: start: 2016, end: 2016
  3. HUMIRA [Suspect]
     Active Substance: ADALIMUMAB
     Dosage: LOADING DOSE: 160MG, 1 IN 1 ONCE
     Route: 058
     Dates: start: 2016, end: 2016
  4. HUMIRA [Suspect]
     Active Substance: ADALIMUMAB
     Dosage: 40MG, 1 IN 2 WEEK
     Route: 058
     Dates: start: 2016, end: 201710
  5. BACTRIM [Suspect]
     Active Substance: SULFAMETHOXAZOLE\TRIMETHOPRIM
     Indication: STAPHYLOCOCCAL INFECTION
     Dosage: UNK
     Route: 048
  6. HUMIRA [Suspect]
     Active Substance: ADALIMUMAB
     Dosage: LOADING DOSE: 160MG, 1 IN 1 ONCE
     Route: 058
     Dates: start: 2016, end: 2016

REACTIONS (9)
  - Bacterial disease carrier [Unknown]
  - Fluid retention [Recovered/Resolved]
  - Pseudomonas infection [Unknown]
  - Crohn^s disease [Recovered/Resolved]
  - Nausea [Recovered/Resolved]
  - Wound infection staphylococcal [Unknown]
  - Fungal infection [Unknown]
  - Vomiting [Recovered/Resolved]
  - Staphylococcal sepsis [Unknown]

NARRATIVE: CASE EVENT DATE: 2016
